FAERS Safety Report 25331833 (Version 3)
Quarter: 2025Q2

REPORT INFORMATION
  Report Type: Report from Study
  Country: CO (occurrence: CO)
  Receive Date: 20250519
  Receipt Date: 20250526
  Transmission Date: 20250717
  Serious: Yes (Life-Threatening, Other)
  Sender: NOVARTIS
  Company Number: CO-002147023-PHHY2017CO156792

PATIENT
  Sex: Female
  Weight: 49 kg

DRUGS (6)
  1. TASIGNA [Suspect]
     Active Substance: NILOTINIB
     Indication: Chronic myeloid leukaemia
     Dosage: 400 MG, Q12H
     Route: 048
     Dates: start: 20150513
  2. TASIGNA [Suspect]
     Active Substance: NILOTINIB
     Indication: Philadelphia positive chronic myeloid leukaemia
     Dosage: 400 MG, Q12H
     Route: 048
  3. TASIGNA [Suspect]
     Active Substance: NILOTINIB
     Dosage: 4 DOSAGE FORM, QD
     Route: 048
     Dates: start: 20150817
  4. ROSUVASTATIN [Concomitant]
     Active Substance: ROSUVASTATIN
     Indication: Blood cholesterol
     Dosage: 40 MG, QD
     Route: 065
  5. DAPAGLIFLOZIN [Concomitant]
     Active Substance: DAPAGLIFLOZIN
     Indication: Diabetes mellitus
     Dosage: 10 MG, QD (AFTER BREAKFAST)
     Route: 065
  6. JANUVIA [Concomitant]
     Active Substance: SITAGLIPTIN PHOSPHATE
     Indication: Diabetes mellitus
     Route: 065

REACTIONS (22)
  - Platelet count decreased [Recovering/Resolving]
  - Fatigue [Unknown]
  - Discouragement [Unknown]
  - Diabetes mellitus [Not Recovered/Not Resolved]
  - Hyperthyroidism [Unknown]
  - Weight decreased [Recovered/Resolved]
  - Dry skin [Recovered/Resolved]
  - Skin disorder [Recovered/Resolved]
  - Scratch [Recovered/Resolved]
  - Skin exfoliation [Recovered/Resolved]
  - Rash [Unknown]
  - Pruritus [Recovered/Resolved]
  - Hypersensitivity [Unknown]
  - Cytogenetic analysis abnormal [Unknown]
  - Arthralgia [Recovered/Resolved]
  - Arthritis [Unknown]
  - Gait disturbance [Unknown]
  - Arthropathy [Recovered/Resolved]
  - Arthralgia [Unknown]
  - Discomfort [Unknown]
  - Inappropriate schedule of product administration [Unknown]
  - Off label use [Unknown]

NARRATIVE: CASE EVENT DATE: 20150101
